FAERS Safety Report 5121188-3 (Version None)
Quarter: 2006Q4

REPORT INFORMATION
  Report Type: 
  Country: None (occurrence: None)
  Receive Date: 20061002
  Receipt Date: 20060919
  Transmission Date: 20070319
  Serious: Yes (Hospitalization)
  Sender: FDA-Public Use
  Company Number: US200609001911

PATIENT
  Age: 47 Year
  Sex: Male
  Weight: 113.4 kg

DRUGS (1)
  1. ZYPREXA [Suspect]

REACTIONS (2)
  - DIABETES MELLITUS [None]
  - LOCALISED INFECTION [None]
